FAERS Safety Report 11370158 (Version 1)
Quarter: 2015Q3

REPORT INFORMATION
  Report Type: Spontaneous
  Country: US (occurrence: US)
  Receive Date: 20150812
  Receipt Date: 20150812
  Transmission Date: 20151125
  Serious: Yes (Hospitalization)
  Sender: FDA-Public Use
  Company Number: US-AUROBINDO-AUR-APL-2015-06985

PATIENT
  Sex: Male
  Weight: 74.54 kg

DRUGS (2)
  1. TORASEMIDE [Suspect]
     Active Substance: TORSEMIDE
     Indication: CARDIOMYOPATHY
     Dosage: 40 MG, DAILY
     Route: 048
  2. LISINOPRIL. [Suspect]
     Active Substance: LISINOPRIL
     Indication: HYPERTENSION
     Dosage: 10 MG, DAILY
     Route: 048

REACTIONS (2)
  - Cardiac failure [Unknown]
  - Condition aggravated [Unknown]
